FAERS Safety Report 13401172 (Version 1)
Quarter: 2017Q2

REPORT INFORMATION
  Report Type: Spontaneous
  Country: MX (occurrence: MX)
  Receive Date: 20170404
  Receipt Date: 20170404
  Transmission Date: 20170830
  Serious: Yes (Other)
  Sender: FDA-Public Use
  Company Number: MX-SA-2017SA051897

PATIENT
  Age: 47 Year
  Sex: Male
  Weight: 125 kg

DRUGS (4)
  1. HUMALOG MIX [Concomitant]
     Active Substance: INSULIN LISPRO
  2. LANTUS [Suspect]
     Active Substance: INSULIN GLARGINE
     Indication: DIABETES MELLITUS
     Dosage: DOSE-60 IU / 24 HOURS (20 IU IN THE MORNING AND 40 IU IN THE NIGHT)
     Route: 058
     Dates: end: 20170325
  3. DILATREND [Concomitant]
     Active Substance: CARVEDILOL
     Indication: HYPERTENSION
     Dosage: (6.25 MG; TABLETS)
     Route: 048
     Dates: start: 2012
  4. CANDESARTAN. [Concomitant]
     Active Substance: CANDESARTAN
     Indication: HYPERTENSION
     Route: 048
     Dates: start: 2012

REACTIONS (3)
  - Diabetic foot infection [Recovered/Resolved]
  - Off label use [Unknown]
  - Hyperglycaemia [Recovered/Resolved]

NARRATIVE: CASE EVENT DATE: 20170128
